FAERS Safety Report 26129293 (Version 1)
Quarter: 2025Q4

REPORT INFORMATION
  Report Type: Other
  Country: GB (occurrence: GB)
  Receive Date: 20251208
  Receipt Date: 20251208
  Transmission Date: 20260118
  Serious: Yes (Other)
  Sender: MACLEODS
  Company Number: None

PATIENT

DRUGS (1)
  1. DONEPEZIL [Suspect]
     Active Substance: DONEPEZIL
     Indication: Dementia
     Dates: start: 20230118

REACTIONS (2)
  - Hypersexuality [Recovering/Resolving]
  - Sexual abuse [Recovering/Resolving]

NARRATIVE: CASE EVENT DATE: 20251116
